APPROVED DRUG PRODUCT: ORILISSA
Active Ingredient: ELAGOLIX SODIUM
Strength: EQ 200MG BASE
Dosage Form/Route: TABLET;ORAL
Application: N210450 | Product #002
Applicant: ABBVIE INC
Approved: Jul 23, 2018 | RLD: Yes | RS: Yes | Type: RX

PATENTS:
Patent 7419983 | Expires: Jul 6, 2029
Patent 11344551 | Expires: Mar 14, 2034
Patent 11344551 | Expires: Mar 14, 2034
Patent 11690845 | Expires: Aug 27, 2040
Patent 11542239 | Expires: Jul 23, 2039
Patent 12102637 | Expires: Aug 20, 2038